FAERS Safety Report 17246658 (Version 1)
Quarter: 2020Q1

REPORT INFORMATION
  Report Type: Spontaneous
  Country: US (occurrence: US)
  Receive Date: 20200108
  Receipt Date: 20200108
  Transmission Date: 20200409
  Serious: No
  Sender: FDA-Public Use
  Company Number: US-PFIZER INC-2016402619

PATIENT
  Age: 71 Year
  Sex: Female

DRUGS (9)
  1. CYMBALTA [Concomitant]
     Active Substance: DULOXETINE HYDROCHLORIDE
     Dosage: 30 MG, 1X/DAY(TAKE ONE CAPSULE BY MOUTH EVERY DAY)
     Route: 048
     Dates: start: 20140424
  2. LYRICA [Suspect]
     Active Substance: PREGABALIN
     Dosage: 50 MG, 3X/DAY
     Route: 048
     Dates: start: 20130726
  3. TESSALON [Concomitant]
     Active Substance: BENZONATATE
     Dosage: 100 MG, AS NEEDED(TAKE 1 CAPSULE 3 TIMES DAILY AS NEEDED)
     Route: 048
     Dates: start: 20160709
  4. CLONIDINE HCL [Concomitant]
     Active Substance: CLONIDINE HYDROCHLORIDE
     Dosage: 0.2 MG, 1X/DAY(TAKE 1 TABLET AT BEDTIME)
     Route: 048
     Dates: start: 20131220
  5. IRON [Concomitant]
     Active Substance: IRON
     Dosage: 1 DF, 2X/DAY (TAKE 1 TABLET TWICE DAILY WITH MEALS.)
     Route: 048
     Dates: start: 20130726
  6. PREDNISONE. [Concomitant]
     Active Substance: PREDNISONE
     Dosage: 20 MG, DAILY (TAKE 1 TABLET DAILY AS DIRECTED)
     Route: 048
     Dates: start: 20160709
  7. FLUTICASONE PROPIONATE. [Concomitant]
     Active Substance: FLUTICASONE PROPIONATE
     Dosage: 4 DF, 1X/DAY (50 MCG/ACT NASAL SUSPENSION: USE 2 SPRAYS IN EACH NOSTRIL ONCE DAILY)
     Route: 045
     Dates: start: 20160711
  8. LISINOPRIL. [Concomitant]
     Active Substance: LISINOPRIL
     Dosage: 20 MG, 2X/DAY(TAKE 1 TABLET TWICE DAILY)
     Route: 048
     Dates: start: 20131218
  9. SIMVASTATIN. [Concomitant]
     Active Substance: SIMVASTATIN
     Dosage: 40 MG, 1X/DAY(TAKE 1 TABLET AT BEDTIME.)
     Route: 048
     Dates: start: 20130726

REACTIONS (1)
  - Visual impairment [Unknown]
